FAERS Safety Report 5116239-6 (Version None)
Quarter: 2006Q3

REPORT INFORMATION
  Report Type: 
  Country: None (occurrence: None)
  Receive Date: 20060927
  Receipt Date: 20060228
  Transmission Date: 20061208
  Serious: Yes (Hospitalization)
  Sender: FDA-Public Use
  Company Number: JP-JPN-A200600783

PATIENT
  Age: 7 Year
  Sex: Male
  Weight: 22 kg

DRUGS (10)
  1. FLUTIDE [Suspect]
     Indication: ASTHMA
     Dosage: 50MCG TWICE PER DAY
     Route: 055
     Dates: start: 20021024, end: 20060206
  2. ADRENAL CORTEX EXTRACT [Concomitant]
     Route: 042
  3. BECOTIDE [Concomitant]
     Indication: ASTHMA
     Dosage: 100MCG PER DAY
     Route: 055
     Dates: start: 20021011, end: 20021023
  4. ONON [Concomitant]
     Indication: ASTHMA
     Dosage: 440MG PER DAY
     Route: 048
  5. MUCODYNE [Concomitant]
     Indication: ASTHMA
     Dosage: 900MG PER DAY
     Route: 048
  6. ALEGYSAL [Concomitant]
     Indication: ASTHMA
     Dosage: 16MG PER DAY
     Route: 048
  7. THEO-DUR [Concomitant]
     Indication: ASTHMA
     Dosage: 580MG PER DAY
     Route: 048
  8. HOKUNALIN [Concomitant]
     Indication: ASTHMA
     Dosage: 1MG PER DAY
     Route: 062
  9. SAXIZON [Concomitant]
     Indication: ASTHMA
     Dosage: 300MG PER DAY
     Route: 042
     Dates: start: 20051225, end: 20051227
  10. SAXIZON [Concomitant]
     Dosage: 300MG PER DAY
     Route: 042
     Dates: start: 20060123, end: 20060125

REACTIONS (4)
  - BRONCHOPNEUMONIA [None]
  - CHOLECYSTITIS [None]
  - GLAUCOMA [None]
  - VISION BLURRED [None]
